FAERS Safety Report 8546537-5 (Version None)
Quarter: 2012Q3

REPORT INFORMATION
  Report Type: 
  Country: None (occurrence: None)
  Receive Date: 20120727
  Receipt Date: 20111222
  Transmission Date: 20120928
  Serious: No
  Sender: FDA-Public Use
  Company Number: US-ASTRAZENECA-2011SE77783

PATIENT
  Age: 55 Year
  Sex: Female
  Weight: 81.6 kg

DRUGS (13)
  1. MEROPAC [Concomitant]
  2. GABAPENTIN [Concomitant]
     Indication: NEUROPATHY PERIPHERAL
  3. SEROQUEL [Suspect]
     Indication: MAJOR DEPRESSION
     Route: 048
  4. CYMBALTA [Concomitant]
  5. LASIX [Concomitant]
  6. SEGRED OTC [Concomitant]
     Indication: GASTROOESOPHAGEAL REFLUX DISEASE
  7. GENERIC SOMA [Concomitant]
  8. BYSTOLIC [Concomitant]
  9. PROTAZEPINE [Concomitant]
  10. NAPROXEN [Concomitant]
  11. ULTRAM [Concomitant]
  12. SEROQUEL [Suspect]
     Indication: ANXIETY
     Route: 048
  13. POTASSIUM CHLORIDE [Concomitant]
     Indication: SWELLING

REACTIONS (5)
  - NASOPHARYNGITIS [None]
  - INFLUENZA [None]
  - PAIN [None]
  - BIPOLAR DISORDER [None]
  - APHONIA [None]
